FAERS Safety Report 7077457-3 (Version None)
Quarter: 2010Q4

REPORT INFORMATION
  Report Type: 
  Country: None (occurrence: None)
  Receive Date: 20101101
  Receipt Date: 20101020
  Transmission Date: 20110411
  Serious: Yes (Death, Hospitalization)
  Sender: FDA-Public Use
  Company Number: BR-ELI_LILLY_AND_COMPANY-BR201010004966

PATIENT
  Sex: Female

DRUGS (7)
  1. FORTEO [Suspect]
     Indication: OSTEOPOROSIS
     Dosage: UNK, UNKNOWN
     Route: 065
     Dates: start: 20080101
  2. OS-CAL D [Concomitant]
     Dosage: UNK, UNKNOWN
     Route: 065
  3. PREDNISONA [Concomitant]
     Dosage: UNK, UNKNOWN
     Route: 065
  4. DEFLAZACORT [Concomitant]
     Dosage: UNK, UNKNOWN
     Route: 065
  5. CILOSTAZOL [Concomitant]
     Dosage: UNK, UNKNOWN
     Route: 065
  6. MAREVAN [Concomitant]
     Dosage: UNK, UNKNOWN
     Route: 065
  7. ARAVA [Concomitant]
     Dosage: UNK, UNKNOWN
     Route: 065

REACTIONS (1)
  - CARDIAC FAILURE [None]
